FAERS Safety Report 4551541-8 (Version None)
Quarter: 2005Q1

REPORT INFORMATION
  Report Type: 
  Country: None (occurrence: None)
  Receive Date: 20050111
  Receipt Date: 20041021
  Transmission Date: 20050727
  Serious: Yes (Other)
  Sender: FDA-Public Use
  Company Number: ANTE001346

PATIENT
  Age: 51 Year
  Sex: Female
  Weight: 65.5 kg

DRUGS (7)
  1. NATALIZUMAB (NATALIZUMAB) [Suspect]
     Indication: MULTIPLE SCLEROSIS
     Dosage: 300 MG; QM; IV
     Route: 042
     Dates: start: 20040907, end: 20041017
  2. AVONEX [Concomitant]
  3. NORMITEN [Concomitant]
  4. PROVIGIL [Concomitant]
  5. ACETAMINOPHEN [Concomitant]
  6. PROGESTERONE [Concomitant]
  7. NOCTURNO [Concomitant]

REACTIONS (8)
  - ALANINE AMINOTRANSFERASE INCREASED [None]
  - ASPARTATE AMINOTRANSFERASE INCREASED [None]
  - BLOOD BILIRUBIN INCREASED [None]
  - BLOOD LACTATE DEHYDROGENASE INCREASED [None]
  - CALCINOSIS [None]
  - CYTOMEGALOVIRUS TEST POSITIVE [None]
  - GAMMA-GLUTAMYLTRANSFERASE INCREASED [None]
  - LIVER FUNCTION TEST ABNORMAL [None]
